FAERS Safety Report 24917764 (Version 2)
Quarter: 2025Q2

REPORT INFORMATION
  Report Type: Spontaneous
  Country: US (occurrence: US)
  Receive Date: 20250203
  Receipt Date: 20250510
  Transmission Date: 20250716
  Serious: No
  Sender: SANOFI AVENTIS
  Company Number: US-SA-2025SA031641

PATIENT
  Age: 71 Year
  Sex: Male

DRUGS (2)
  1. DUPIXENT [Suspect]
     Active Substance: DUPILUMAB
     Indication: Dermatitis atopic
     Dosage: 300 MG, QOW
     Route: 058
     Dates: end: 202501
  2. DUPIXENT [Suspect]
     Active Substance: DUPILUMAB
     Route: 058
     Dates: start: 202501

REACTIONS (7)
  - Skin exfoliation [Unknown]
  - Pruritus [Unknown]
  - Eczema [Unknown]
  - Pruritus [Unknown]
  - Erythema [Unknown]
  - Haemorrhage [Unknown]
  - Intentional product misuse [Unknown]

NARRATIVE: CASE EVENT DATE: 20250101
